FAERS Safety Report 25621791 (Version 1)
Quarter: 2025Q3

REPORT INFORMATION
  Report Type: Spontaneous
  Country: US (occurrence: US)
  Receive Date: 20250730
  Receipt Date: 20250730
  Transmission Date: 20251020
  Serious: Yes (Death, Hospitalization)
  Sender: MYLAN
  Company Number: US-MYLANLABS-2025M1064042

PATIENT
  Age: 75 Year
  Sex: Male

DRUGS (44)
  1. METHOTREXATE SODIUM [Suspect]
     Active Substance: METHOTREXATE SODIUM
     Indication: Rheumatoid arthritis
  2. METHOTREXATE SODIUM [Suspect]
     Active Substance: METHOTREXATE SODIUM
     Route: 065
  3. METHOTREXATE SODIUM [Suspect]
     Active Substance: METHOTREXATE SODIUM
     Route: 065
  4. METHOTREXATE SODIUM [Suspect]
     Active Substance: METHOTREXATE SODIUM
  5. VORICONAZOLE [Suspect]
     Active Substance: VORICONAZOLE
     Indication: Aspergillus infection
  6. VORICONAZOLE [Suspect]
     Active Substance: VORICONAZOLE
     Indication: Candida infection
     Route: 065
  7. VORICONAZOLE [Suspect]
     Active Substance: VORICONAZOLE
     Route: 065
  8. VORICONAZOLE [Suspect]
     Active Substance: VORICONAZOLE
  9. RITUXIMAB [Concomitant]
     Active Substance: RITUXIMAB
     Indication: Rheumatoid arthritis
  10. RITUXIMAB [Concomitant]
     Active Substance: RITUXIMAB
     Route: 065
  11. RITUXIMAB [Concomitant]
     Active Substance: RITUXIMAB
     Route: 065
  12. RITUXIMAB [Concomitant]
     Active Substance: RITUXIMAB
  13. CEFEPIME [Concomitant]
     Active Substance: CEFEPIME HYDROCHLORIDE
     Indication: Evidence based treatment
  14. CEFEPIME [Concomitant]
     Active Substance: CEFEPIME HYDROCHLORIDE
     Route: 065
  15. CEFEPIME [Concomitant]
     Active Substance: CEFEPIME HYDROCHLORIDE
     Route: 065
  16. CEFEPIME [Concomitant]
     Active Substance: CEFEPIME HYDROCHLORIDE
  17. VANCOMYCIN [Concomitant]
     Active Substance: VANCOMYCIN
     Indication: Evidence based treatment
  18. VANCOMYCIN [Concomitant]
     Active Substance: VANCOMYCIN
     Route: 065
  19. VANCOMYCIN [Concomitant]
     Active Substance: VANCOMYCIN
     Route: 065
  20. VANCOMYCIN [Concomitant]
     Active Substance: VANCOMYCIN
  21. REMDESIVIR [Concomitant]
     Active Substance: REMDESIVIR
     Indication: COVID-19
  22. REMDESIVIR [Concomitant]
     Active Substance: REMDESIVIR
     Route: 065
  23. REMDESIVIR [Concomitant]
     Active Substance: REMDESIVIR
     Route: 065
  24. REMDESIVIR [Concomitant]
     Active Substance: REMDESIVIR
  25. DEXAMETHASONE [Concomitant]
     Active Substance: DEXAMETHASONE
     Indication: Respiratory failure
  26. DEXAMETHASONE [Concomitant]
     Active Substance: DEXAMETHASONE
     Route: 065
  27. DEXAMETHASONE [Concomitant]
     Active Substance: DEXAMETHASONE
     Route: 065
  28. DEXAMETHASONE [Concomitant]
     Active Substance: DEXAMETHASONE
  29. DOXYCYCLINE [Concomitant]
     Active Substance: DOXYCYCLINE
     Indication: Evidence based treatment
  30. DOXYCYCLINE [Concomitant]
     Active Substance: DOXYCYCLINE
     Route: 065
  31. DOXYCYCLINE [Concomitant]
     Active Substance: DOXYCYCLINE
     Route: 065
  32. DOXYCYCLINE [Concomitant]
     Active Substance: DOXYCYCLINE
  33. LINEZOLID [Concomitant]
     Active Substance: LINEZOLID
     Indication: Evidence based treatment
  34. LINEZOLID [Concomitant]
     Active Substance: LINEZOLID
     Route: 065
  35. LINEZOLID [Concomitant]
     Active Substance: LINEZOLID
     Route: 065
  36. LINEZOLID [Concomitant]
     Active Substance: LINEZOLID
  37. MEROPENEM [Concomitant]
     Active Substance: MEROPENEM
     Indication: Evidence based treatment
  38. MEROPENEM [Concomitant]
     Active Substance: MEROPENEM
     Route: 065
  39. MEROPENEM [Concomitant]
     Active Substance: MEROPENEM
     Route: 065
  40. MEROPENEM [Concomitant]
     Active Substance: MEROPENEM
  41. GANCICLOVIR [Concomitant]
     Active Substance: GANCICLOVIR
     Indication: Cytomegalovirus infection
  42. GANCICLOVIR [Concomitant]
     Active Substance: GANCICLOVIR
     Route: 065
  43. GANCICLOVIR [Concomitant]
     Active Substance: GANCICLOVIR
     Route: 065
  44. GANCICLOVIR [Concomitant]
     Active Substance: GANCICLOVIR

REACTIONS (3)
  - Drug ineffective [Fatal]
  - Toxicity to various agents [Unknown]
  - Respiratory failure [Recovering/Resolving]
